FAERS Safety Report 25849380 (Version 3)
Quarter: 2025Q4

REPORT INFORMATION
  Report Type: Report from Study
  Country: BR (occurrence: BR)
  Receive Date: 20250925
  Receipt Date: 20251003
  Transmission Date: 20260118
  Serious: Yes (Other)
  Sender: JOHNSON AND JOHNSON
  Company Number: BR-JNJFOC-20250934394

PATIENT
  Age: 45 Year
  Sex: Male
  Weight: 60 kg

DRUGS (1)
  1. INFLIXIMAB [Suspect]
     Active Substance: INFLIXIMAB
     Indication: Crohn^s disease
     Route: 041
     Dates: start: 20120917, end: 20190618

REACTIONS (10)
  - Colectomy [Unknown]
  - Intestinal operation [Unknown]
  - Gastrointestinal inflammation [Unknown]
  - Thrombosis [Unknown]
  - Anxiety [Unknown]
  - Weight decreased [Unknown]
  - Arthritis [Unknown]
  - Osteoarthritis [Unknown]
  - Adverse event [Unknown]
  - Drug ineffective [Unknown]

NARRATIVE: CASE EVENT DATE: 20190101
